FAERS Safety Report 7834949-4 (Version None)
Quarter: 2011Q4

REPORT INFORMATION
  Report Type: 
  Country: None (occurrence: None)
  Receive Date: 20111024
  Receipt Date: 20111019
  Transmission Date: 20120403
  Serious: Yes (Hospitalization, Other)
  Sender: FDA-Public Use
  Company Number: DK-JNJFOC-20110907827

PATIENT

DRUGS (19)
  1. VINCRISTINE [Suspect]
     Indication: B-CELL LYMPHOMA RECURRENT
     Route: 065
     Dates: start: 20060215
  2. VINCRISTINE [Suspect]
     Route: 065
     Dates: start: 20060901
  3. CYCLOPHOSPHAMIDE [Suspect]
     Indication: B-CELL LYMPHOMA RECURRENT
     Route: 065
     Dates: start: 20060901
  4. CYCLOPHOSPHAMIDE [Suspect]
     Route: 065
     Dates: start: 20060215
  5. ZEVALIN [Suspect]
     Indication: B-CELL LYMPHOMA RECURRENT
     Route: 065
     Dates: start: 20060215
  6. ZEVALIN [Suspect]
     Route: 065
     Dates: start: 20060901, end: 20060901
  7. RITUXIMAB [Suspect]
     Indication: B-CELL LYMPHOMA RECURRENT
     Route: 065
     Dates: start: 20080115
  8. RITUXIMAB [Suspect]
     Route: 065
     Dates: start: 20060215
  9. PREDNISONE [Suspect]
     Route: 065
     Dates: start: 20060901
  10. YTRACIS [Suspect]
     Indication: B-CELL LYMPHOMA RECURRENT
     Route: 065
     Dates: start: 20060901, end: 20060901
  11. PREDNISONE [Suspect]
     Indication: B-CELL LYMPHOMA RECURRENT
     Route: 065
     Dates: start: 20080115
  12. RITUXIMAB [Suspect]
     Route: 065
     Dates: start: 20060901
  13. DOXORUBICIN HCL [Suspect]
     Indication: B-CELL LYMPHOMA RECURRENT
     Route: 042
     Dates: start: 20060901
  14. CYCLOPHOSPHAMIDE [Suspect]
     Route: 065
     Dates: start: 20050110
  15. PREDNISONE [Suspect]
     Route: 065
     Dates: start: 20060215
  16. RITUXIMAB [Suspect]
     Route: 065
     Dates: start: 20050110
  17. YTRACIS [Suspect]
     Route: 065
     Dates: start: 20060215, end: 20060215
  18. FLUDARABINE PHOSPHATE [Concomitant]
     Indication: B-CELL LYMPHOMA RECURRENT
     Route: 065
     Dates: start: 20050110
  19. BENDAMUSTINE [Concomitant]
     Indication: B-CELL LYMPHOMA RECURRENT
     Route: 065
     Dates: start: 20080115

REACTIONS (2)
  - MYELODYSPLASTIC SYNDROME [None]
  - NEOPLASM MALIGNANT [None]
